FAERS Safety Report 14475184 (Version 1)
Quarter: 2018Q1

REPORT INFORMATION
  Report Type: Spontaneous
  Country: US (occurrence: US)
  Receive Date: 20180201
  Receipt Date: 20180201
  Transmission Date: 20180509
  Serious: Yes (Other)
  Sender: FDA-Public Use
  Company Number: US-PFIZER INC-2018041781

PATIENT
  Sex: Female
  Weight: 81.65 kg

DRUGS (6)
  1. XANAX [Concomitant]
     Active Substance: ALPRAZOLAM
     Indication: POST-TRAUMATIC STRESS DISORDER
     Dosage: UNK
  2. LIDOCAINE. [Concomitant]
     Active Substance: LIDOCAINE
     Dosage: UNK
  3. PERCOCET /00446701/ [Concomitant]
     Active Substance: ACETAMINOPHEN\OXYCODONE HYDROCHLORIDE\OXYCODONE TEREPHTHALATE
     Dosage: UNK
  4. LYRICA [Suspect]
     Active Substance: PREGABALIN
     Indication: PAIN
  5. LYRICA [Suspect]
     Active Substance: PREGABALIN
     Indication: GAIT DISTURBANCE
     Dosage: 75 MG, 2X/DAY
     Route: 048
  6. SELMA /00337102/ [Concomitant]
     Indication: LIMB DISCOMFORT
     Dosage: UNK

REACTIONS (12)
  - Hypoaesthesia [Unknown]
  - Fall [Unknown]
  - Stress [Unknown]
  - Migraine [Unknown]
  - Condition aggravated [Unknown]
  - Neuropathy peripheral [Not Recovered/Not Resolved]
  - Nerve compression [Unknown]
  - Bone disorder [Unknown]
  - Gait inability [Unknown]
  - Loss of consciousness [Unknown]
  - Speech disorder [Recovering/Resolving]
  - Seizure [Unknown]

NARRATIVE: CASE EVENT DATE: 2017
